FAERS Safety Report 24433468 (Version 1)
Quarter: 2024Q4

REPORT INFORMATION
  Report Type: Spontaneous
  Country: CH (occurrence: CH)
  Receive Date: 20241014
  Receipt Date: 20241014
  Transmission Date: 20250115
  Serious: Yes (Other)
  Sender: ROCHE
  Company Number: CH-Atnahs Limited-ATNAHS20241002806

PATIENT
  Age: 29 Year
  Sex: Female

DRUGS (2)
  1. IBANDRONIC ACID [Suspect]
     Active Substance: IBANDRONIC ACID
     Indication: Osteoporosis
     Route: 050
     Dates: start: 2016, end: 2019
  2. ROMOSOZUMAB [Concomitant]
     Active Substance: ROMOSOZUMAB

REACTIONS (3)
  - Rib fracture [Unknown]
  - Weight decreased [Unknown]
  - Off label use [Unknown]

NARRATIVE: CASE EVENT DATE: 20210101
